FAERS Safety Report 12844945 (Version 2)
Quarter: 2016Q4

REPORT INFORMATION
  Report Type: Spontaneous
  Country: DE (occurrence: DE)
  Receive Date: 20161013
  Receipt Date: 20161229
  Transmission Date: 20170207
  Serious: Yes (Hospitalization)
  Sender: FDA-Public Use
  Company Number: DE-009507513-1610DEU003713

PATIENT
  Age: 80 Year
  Sex: Female
  Weight: 83 kg

DRUGS (10)
  1. MARCUMAR [Suspect]
     Active Substance: PHENPROCOUMON
     Indication: AORTIC ARTERIOSCLEROSIS
     Dosage: DAILY DOSE: 0.75 MG; LONG-TERM MEDICATION
     Route: 048
  2. PANTOZOL [Concomitant]
     Active Substance: PANTOPRAZOLE SODIUM
     Dosage: DAILY DOSE: 80 MG EVERY DAY
     Route: 048
     Dates: start: 20160920, end: 20160924
  3. BISOPROLOL [Concomitant]
     Active Substance: BISOPROLOL
     Dosage: 10 MG; LONG-TERM MEDICATION
     Route: 048
  4. SPIRONOLACTONE. [Concomitant]
     Active Substance: SPIRONOLACTONE
     Dosage: LONG-TERM MEDICATION
     Route: 048
  5. AMLODIPINE [Concomitant]
     Active Substance: AMLODIPINE BESYLATE
     Dosage: 5 MG; LONG-TERM MEDICATION
     Route: 048
  6. RAMILICH [Concomitant]
     Active Substance: RAMIPRIL
     Dosage: 5 MG; LONG-TERM MEDICATION
     Route: 048
  7. SIMVASTATIN. [Suspect]
     Active Substance: SIMVASTATIN
     Dosage: 40 MG; LONG-TERM MEDICATION
     Route: 048
  8. AVALOX [Suspect]
     Active Substance: MOXIFLOXACIN HYDROCHLORIDE
     Indication: INFECTED SKIN ULCER
     Dosage: 400 MG
     Route: 048
     Dates: start: 20160920, end: 20160924
  9. NOVALGIN (DIPYRONE) [Concomitant]
     Active Substance: DIPYRONE
     Indication: PAIN
     Dosage: DAILY DOSE: 3000 MG EVERY DAYS
     Route: 048
     Dates: start: 20160920, end: 20160924
  10. TORSEMIDE. [Concomitant]
     Active Substance: TORSEMIDE
     Dosage: 10 MG
     Route: 048

REACTIONS (1)
  - International normalised ratio increased [Recovered/Resolved]

NARRATIVE: CASE EVENT DATE: 20160926
